FAERS Safety Report 11687686 (Version 1)
Quarter: 2015Q4

REPORT INFORMATION
  Report Type: Spontaneous
  Country: US (occurrence: US)
  Receive Date: 20151030
  Receipt Date: 20151030
  Transmission Date: 20160304
  Serious: No
  Sender: FDA-Public Use
  Company Number: US-BAYER-2015-456721

PATIENT
  Sex: Female

DRUGS (2)
  1. CLARITIN [Suspect]
     Active Substance: LORATADINE
     Dosage: 3 DF, ON THE SAME DAY
     Route: 048
     Dates: start: 20151029, end: 20151029
  2. CLARITIN [Suspect]
     Active Substance: LORATADINE
     Dosage: UNK
     Route: 048

REACTIONS (1)
  - Extra dose administered [Unknown]

NARRATIVE: CASE EVENT DATE: 20151029
